FAERS Safety Report 10059963 (Version 3)
Quarter: 2014Q2

REPORT INFORMATION
  Report Type: Report from Study
  Country: AU (occurrence: AU)
  Receive Date: 20140404
  Receipt Date: 20140423
  Transmission Date: 20141212
  Serious: Yes (Hospitalization)
  Sender: FDA-Public Use
  Company Number: AU-GLAXOSMITHKLINE-B0981868A

PATIENT
  Age: 49 Year
  Sex: Female
  Weight: 60 kg

DRUGS (2)
  1. DABRAFENIB [Suspect]
     Indication: METASTATIC MALIGNANT MELANOMA
     Dosage: 150MG TWICE PER DAY
     Route: 048
     Dates: start: 201312
  2. CLEXANE [Concomitant]
     Indication: THROMBOSIS
     Dosage: 60MG TWICE PER DAY
     Route: 058
     Dates: start: 201312

REACTIONS (7)
  - Angiopathy [Not Recovered/Not Resolved]
  - Thrombosis [Not Recovered/Not Resolved]
  - Disease progression [Not Recovered/Not Resolved]
  - Vascular neoplasm [Not Recovered/Not Resolved]
  - Superior vena cava occlusion [Not Recovered/Not Resolved]
  - Face oedema [Not Recovered/Not Resolved]
  - Choking sensation [Not Recovered/Not Resolved]
